FAERS Safety Report 9437611 (Version 5)
Quarter: 2013Q4

REPORT INFORMATION
  Report Type: Spontaneous
  Country: IT (occurrence: IT)
  Receive Date: 20130802
  Receipt Date: 20131017
  Transmission Date: 20140711
  Serious: Yes (Hospitalization)
  Sender: FDA-Public Use
  Company Number: IT-PFIZER INC-2013223557

PATIENT
  Age: 65 Year
  Sex: Male

DRUGS (12)
  1. RAMIPRIL [Suspect]
     Indication: HYPERTENSION
     Dosage: 5 MG, 1X/DAY
     Route: 048
     Dates: start: 20080101, end: 20130625
  2. LASIX [Interacting]
     Indication: INTENTIONAL DRUG MISUSE
     Dosage: 25 MG, 3X/DAY (3 DF DAILY)
     Route: 048
     Dates: start: 20130501, end: 20130625
  3. KANRENOL [Interacting]
     Indication: PRODUCT USED FOR UNKNOWN INDICATION
     Dosage: 25 MG, UNK
     Route: 065
  4. ESKIM [Concomitant]
     Dosage: UNK
  5. TORVAST [Concomitant]
     Dosage: UNK
  6. LANTUS [Concomitant]
     Dosage: UNK
  7. APIDRA [Concomitant]
     Dosage: UNK
  8. CLEXANE [Concomitant]
     Dosage: UNK
  9. PANTOPRAZOLE SODIUM [Concomitant]
     Dosage: UNK
  10. AMIODARONE HYDROCHLORIDE [Concomitant]
     Indication: ATRIAL FIBRILLATION
     Dosage: UNK
  11. ALLOPURINOL [Concomitant]
     Dosage: UNK
  12. BISOPROLOL FUMARATE [Concomitant]
     Dosage: UNK

REACTIONS (4)
  - Drug interaction [Recovered/Resolved]
  - Hyperkalaemia [Recovered/Resolved]
  - Renal failure acute [Recovered/Resolved]
  - Drug administration error [Unknown]
